FAERS Safety Report 7223620-8 (Version None)
Quarter: 2011Q1

REPORT INFORMATION
  Report Type: 
  Country: None (occurrence: None)
  Receive Date: 20110112
  Receipt Date: 20100913
  Transmission Date: 20110831
  Serious: No
  Sender: FDA-Public Use
  Company Number: US-ALLERGAN-1011807US

PATIENT
  Age: 29 Year
  Sex: Female

DRUGS (2)
  1. RESTASIS [Suspect]
     Indication: DRY EYE
     Dosage: 1 GTT, QD
     Route: 047
     Dates: start: 20100801
  2. REFRESH PLUS [Concomitant]
     Dosage: UNK

REACTIONS (2)
  - EYE PAIN [None]
  - FOREIGN BODY SENSATION IN EYES [None]
